FAERS Safety Report 8914919 (Version 2)
Quarter: 2013Q2

REPORT INFORMATION
  Report Type: Spontaneous
  Country: US (occurrence: US)
  Receive Date: 20121116
  Receipt Date: 20130403
  Transmission Date: 20140414
  Serious: Yes (Other)
  Sender: FDA-Public Use
  Company Number: US-FRI-1000039049

PATIENT
  Age: 29 Year
  Sex: Female
  Weight: 63.5 kg

DRUGS (6)
  1. TEFLARO [Suspect]
     Indication: CELLULITIS ORBITAL
     Dosage: 1200 MG
     Route: 042
     Dates: start: 20120815, end: 20120820
  2. TEFLARO [Suspect]
     Indication: CELLULITIS ORBITAL
  3. ZANAFLEX [Concomitant]
  4. AMITRIPTYLINE [Concomitant]
  5. HYDROCODONE/ACETAMINOPHEN [Concomitant]
  6. CLONIDINE [Concomitant]
     Indication: HYPERTENSION
     Dosage: 0.2 MG

REACTIONS (6)
  - Blood pressure increased [Recovering/Resolving]
  - Faeces discoloured [Recovered/Resolved]
  - Phlebitis [Recovered/Resolved]
  - Abdominal pain [Unknown]
  - Diarrhoea [Unknown]
  - Nausea [Recovered/Resolved]
